FAERS Safety Report 11375426 (Version 1)
Quarter: 2015Q3

REPORT INFORMATION
  Report Type: Spontaneous
  Country: IT (occurrence: IT)
  Receive Date: 20150813
  Receipt Date: 20150813
  Transmission Date: 20151125
  Serious: Yes (Death, Hospitalization)
  Sender: FDA-Public Use
  Company Number: IT-JNJFOC-20150806272

PATIENT
  Age: 82 Year
  Sex: Female

DRUGS (2)
  1. INFLIXIMAB, RECOMBINANT [Suspect]
     Active Substance: INFLIXIMAB
     Indication: TOXIC EPIDERMAL NECROLYSIS
     Route: 042
  2. INFLIXIMAB, RECOMBINANT [Suspect]
     Active Substance: INFLIXIMAB
     Indication: TOXIC EPIDERMAL NECROLYSIS
     Dosage: AFTER TWO WEEKS
     Route: 042

REACTIONS (3)
  - Multi-organ failure [Fatal]
  - Treatment failure [Unknown]
  - Product use issue [Unknown]
